FAERS Safety Report 5918102-7 (Version None)
Quarter: 2008Q4

REPORT INFORMATION
  Report Type: 
  Country: None (occurrence: None)
  Receive Date: 20081009
  Receipt Date: 20080925
  Transmission Date: 20090506
  Serious: Yes (Death, Hospitalization)
  Sender: FDA-Public Use
  Company Number: 2008002488

PATIENT
  Age: 50 Year
  Sex: Male

DRUGS (2)
  1. ERLOTINIB (ERLOTINIB) (TABLET) (ERLOTINIB) [Suspect]
     Indication: NON-SMALL CELL LUNG CANCER
     Dosage: 150 MG, QD; ORAL
     Route: 048
     Dates: start: 20050921
  2. OXYCONTIN [Concomitant]

REACTIONS (1)
  - METASTASES TO CENTRAL NERVOUS SYSTEM [None]
